FAERS Safety Report 9556241 (Version 3)
Quarter: 2014Q2

REPORT INFORMATION
  Report Type: Spontaneous
  Country: DE (occurrence: DE)
  Receive Date: 20130926
  Receipt Date: 20140509
  Transmission Date: 20141212
  Serious: Yes (Death, Life-Threatening, Hospitalization)
  Sender: FDA-Public Use
  Company Number: GXKR2013DE003076

PATIENT
  Sex: 0

DRUGS (8)
  1. RAMIPRIL [Suspect]
     Dosage: UNK UKN, UNK
     Route: 048
  2. AFINITOR [Suspect]
     Indication: METASTASES TO LIVER
     Dosage: UNK UKN, UNK
     Dates: start: 201305
  3. METFORMIN [Concomitant]
  4. DIGITOXIN [Concomitant]
  5. ATELEC [Concomitant]
  6. GLIMEPIRID [Concomitant]
  7. EXEMESTAN [Concomitant]
     Indication: METASTASES TO LIVER
     Dates: start: 201305
  8. BELOC-ZOC MITE [Concomitant]

REACTIONS (9)
  - Angioedema [Fatal]
  - Swollen tongue [Fatal]
  - Cardiogenic shock [Unknown]
  - Myocardial infarction [Unknown]
  - Pneumonia [Fatal]
  - Sepsis [Fatal]
  - Pyrexia [Fatal]
  - Septic shock [Fatal]
  - Multi-organ failure [Fatal]
